FAERS Safety Report 8813731 (Version 1)
Quarter: 2012Q4

REPORT INFORMATION
  Report Type: 
  Country: ES (occurrence: ES)
  Receive Date: 20120928
  Receipt Date: 20120928
  Transmission Date: 20130627
  Serious: Yes (Other)
  Sender: FDA-Public Use
  Company Number: ES-ROCHE-1137892

PATIENT
  Age: 54 Year
  Sex: Male

DRUGS (1)
  1. ALTEPLASE [Suspect]
     Indication: CEREBRAL INFARCTION
     Dosage: INDICATION:INFARCTION OF THE RIGHT MIDDLE CEREBRAL ARTERY TERRITORY
     Route: 042

REACTIONS (4)
  - Brain herniation [Unknown]
  - Haemorrhagic transformation stroke [Unknown]
  - Condition aggravated [Unknown]
  - Drug ineffective [Unknown]
